FAERS Safety Report 16025739 (Version 2)
Quarter: 2019Q1

REPORT INFORMATION
  Report Type: Spontaneous
  Country: GB (occurrence: GB)
  Receive Date: 20190302
  Receipt Date: 20190308
  Transmission Date: 20190418
  Serious: Yes (Hospitalization)
  Sender: FDA-Public Use
  Company Number: GB-ACCORD-110049

PATIENT
  Age: 47 Year
  Sex: Male

DRUGS (7)
  1. CALCEOS [Concomitant]
     Active Substance: CALCIUM CARBONATE\CHOLECALCIFEROL
  2. RANITIDINE ACCORD-UK [Concomitant]
  3. FLECAINIDE [Concomitant]
     Active Substance: FLECAINIDE
  4. MYCOPHENOLIC ACID. [Concomitant]
     Active Substance: MYCOPHENOLIC ACID
  5. TACROLIMUS. [Concomitant]
     Active Substance: TACROLIMUS
  6. BISOPROLOL [Concomitant]
     Active Substance: BISOPROLOL
  7. SERTRALINE [Suspect]
     Active Substance: SERTRALINE HYDROCHLORIDE
     Indication: PRODUCT USED FOR UNKNOWN INDICATION
     Route: 048
     Dates: end: 20180803

REACTIONS (1)
  - Epigastric discomfort [Unknown]
